FAERS Safety Report 10128633 (Version 1)
Quarter: 2014Q2

REPORT INFORMATION
  Report Type: Spontaneous
  Country: FR (occurrence: FR)
  Receive Date: 20140428
  Receipt Date: 20140428
  Transmission Date: 20141212
  Serious: Yes (Other)
  Sender: FDA-Public Use
  Company Number: FR-TEVA-477809ISR

PATIENT
  Age: 46 Year
  Sex: Female

DRUGS (4)
  1. FLUOROURACIL [Suspect]
     Indication: ADENOCARCINOMA OF COLON
     Dosage: 400 MG/M2 AT DAY 1
     Route: 040
  2. FLUOROURACIL [Suspect]
     Indication: ADENOCARCINOMA OF COLON
     Dosage: 2400 MG/M2 AT DAY 1 IN CONTINUOUS INFUSION FOR 46 H
     Route: 041
  3. OXALIPLATIN [Concomitant]
     Indication: ADENOCARCINOMA OF COLON
     Dosage: 85 MG/M2 AT DAY 1
     Route: 065
  4. FOLINIC ACID [Concomitant]
     Indication: ADENOCARCINOMA OF COLON
     Dosage: 400 MG/M2
     Route: 065

REACTIONS (3)
  - Neutropenia [Unknown]
  - Mucosal inflammation [Unknown]
  - Alopecia [Unknown]
